FAERS Safety Report 17658892 (Version 1)
Quarter: 2020Q2

REPORT INFORMATION
  Report Type: Report from Study
  Country: None (occurrence: US)
  Receive Date: 20200413
  Receipt Date: 20200413
  Transmission Date: 20200713
  Serious: Yes (Hospitalization)
  Sender: FDA-Public Use
  Company Number: US-ABBVIE-20K-163-3358559-00

PATIENT
  Sex: Female

DRUGS (2)
  1. HUMIRA [Suspect]
     Active Substance: ADALIMUMAB
     Route: 058
  2. HUMIRA [Suspect]
     Active Substance: ADALIMUMAB
     Indication: PSORIATIC ARTHROPATHY
     Route: 058
     Dates: end: 2019

REACTIONS (8)
  - Blood test abnormal [Recovering/Resolving]
  - Connective tissue disorder [Recovering/Resolving]
  - Arthritis [Not Recovered/Not Resolved]
  - Psoriasis [Not Recovered/Not Resolved]
  - Toxicity to various agents [Recovering/Resolving]
  - Dermatitis psoriasiform [Not Recovered/Not Resolved]
  - Thyroid function test abnormal [Recovering/Resolving]
  - Mobility decreased [Recovering/Resolving]
